FAERS Safety Report 5309507-6 (Version None)
Quarter: 2007Q1

REPORT INFORMATION
  Report Type: 
  Country: None (occurrence: None)
  Receive Date: 20070201
  Receipt Date: 20061128
  Transmission Date: 20070707
  Serious: No
  Sender: FDA-Public Use
  Company Number: 258981

PATIENT
  Age: 42 Year
  Sex: Female
  Weight: 94.8 kg

DRUGS (8)
  1. LEVEMIR [Suspect]
     Indication: DIABETES MELLITUS INSULIN-DEPENDENT
     Dosage: 46 IU, BID, SUBCUTANEOUS
     Route: 058
     Dates: start: 20061101
  2. LEVEMIR [Suspect]
     Indication: DIABETES MELLITUS INSULIN-DEPENDENT
     Dosage: 46 IU, BID, SUBCUTANEOUS
     Route: 058
     Dates: start: 20061101
  3. NOVOLOG FLEXPEN (INSULIN ASPART) SOLUTION FOR INJECTION [Concomitant]
  4. SYNTHROID [Concomitant]
  5. VYTORIN [Concomitant]
  6. ZESTRIL [Concomitant]
  7. ASPIRIN [Concomitant]
  8. PRILOSEC [Concomitant]

REACTIONS (1)
  - INJECTION SITE MASS [None]
